FAERS Safety Report 24299746 (Version 1)
Quarter: 2024Q3

REPORT INFORMATION
  Report Type: Spontaneous
  Country: DE (occurrence: DE)
  Receive Date: 20240909
  Receipt Date: 20240909
  Transmission Date: 20241017
  Serious: Yes (Hospitalization, Other)
  Sender: SANDOZ
  Company Number: DE-ADRED-04644-01

PATIENT
  Age: 74 Year
  Sex: Male

DRUGS (21)
  1. ASPIRIN [Suspect]
     Active Substance: ASPIRIN
     Indication: Product used for unknown indication
     Dosage: 100 MG, QD  (0-1-0-0)
     Route: 065
  2. ALLOPURINOL [Suspect]
     Active Substance: ALLOPURINOL
     Indication: Product used for unknown indication
     Dosage: 150 MG, QD (1-0-0-0)
     Route: 065
  3. CARBOPLATIN [Suspect]
     Active Substance: CARBOPLATIN
     Indication: Non-small cell lung cancer
     Dosage: 400.000MG TIW
     Route: 042
     Dates: start: 20240201
  4. OPDIVO [Suspect]
     Active Substance: NIVOLUMAB
     Indication: Non-small cell lung cancer
     Dosage: 360.000MG TIW
     Route: 042
     Dates: start: 20240202
  5. PACLITAXEL [Suspect]
     Active Substance: PACLITAXEL
     Indication: Product used for unknown indication
     Dosage: 350.000MG
     Route: 042
     Dates: start: 20240201, end: 20240229
  6. TORSEMIDE [Suspect]
     Active Substance: TORSEMIDE
     Indication: Non-small cell lung cancer
     Dosage: UNK
     Route: 065
     Dates: start: 20240205
  7. TORSEMIDE [Suspect]
     Active Substance: TORSEMIDE
     Dosage: UNK
     Route: 065
     Dates: end: 20240204
  8. YERVOY [Suspect]
     Active Substance: IPILIMUMAB
     Indication: Non-small cell lung cancer
     Dosage: 74.000MG
     Route: 042
     Dates: start: 20240202
  9. ASS PROTECT [Concomitant]
     Indication: Product used for unknown indication
     Dosage: UNK
     Route: 065
  10. AMOXICILLIN\CLAVULANIC ACID [Concomitant]
     Active Substance: AMOXICILLIN\CLAVULANIC ACID
     Indication: Product used for unknown indication
     Dosage: 875/125 MGUNK
     Route: 065
     Dates: start: 20240220, end: 20240225
  11. ATORVASTATIN [Concomitant]
     Active Substance: ATORVASTATIN
     Indication: Product used for unknown indication
     Dosage: UNK
     Route: 065
  12. CANDESARTAN [Concomitant]
     Active Substance: CANDESARTAN
     Indication: Product used for unknown indication
     Dosage: 32 MG, BID (1-0-1-0)
     Route: 065
  13. Emser [Concomitant]
     Indication: Product used for unknown indication
     Dosage: UNK
     Route: 065
  14. EZETIMIBE [Concomitant]
     Active Substance: EZETIMIBE
     Indication: Product used for unknown indication
     Dosage: UNK
     Route: 065
  15. ALBUTEROL\IPRATROPIUM [Concomitant]
     Active Substance: ALBUTEROL\IPRATROPIUM
     Indication: Product used for unknown indication
     Dosage: 1,25 MG + IPRATROPIUM 250 ?GUNK
     Route: 065
  16. LERCANIDIPINE [Concomitant]
     Active Substance: LERCANIDIPINE
     Indication: Product used for unknown indication
     Dosage: 10 MG, QD  (1-0-0-0)
     Route: 065
  17. METOPROLOL [Concomitant]
     Active Substance: METOPROLOL
     Indication: Product used for unknown indication
     Dosage: 23.75 MG, BID(1-0-1-0)
     Route: 065
  18. PANTOPRAZOLE SODIUM [Concomitant]
     Active Substance: PANTOPRAZOLE SODIUM
     Indication: Prophylaxis
     Dosage: UNK
     Route: 065
     Dates: start: 20240204
  19. SIMVASTATIN [Concomitant]
     Active Substance: SIMVASTATIN
     Indication: Product used for unknown indication
     Dosage: 20 MG, QD (0-0-1-0  )
     Route: 065
  20. Unacid [Concomitant]
     Indication: Product used for unknown indication
     Dosage: UNK
     Route: 065
     Dates: start: 20240212, end: 20240219
  21. XARELTO [Concomitant]
     Active Substance: RIVAROXABAN
     Indication: Product used for unknown indication
     Dosage: UNK
     Route: 065

REACTIONS (13)
  - General physical health deterioration [Unknown]
  - Haematochezia [Unknown]
  - Palpitations [Unknown]
  - Fatigue [Unknown]
  - Pallor [Unknown]
  - Dyspnoea [Unknown]
  - Anaemia [Unknown]
  - Dizziness [Unknown]
  - General physical health deterioration [Recovering/Resolving]
  - Pancytopenia [Recovered/Resolved]
  - Non-small cell lung cancer [Unknown]
  - Hypokalaemia [Recovered/Resolved]
  - Orthopnoea [Not Recovered/Not Resolved]

NARRATIVE: CASE EVENT DATE: 20240304
